FAERS Safety Report 9550198 (Version 1)
Quarter: 2013Q3

REPORT INFORMATION
  Report Type: Spontaneous
  Country: US (occurrence: US)
  Receive Date: 20130924
  Receipt Date: 20130924
  Transmission Date: 20140515
  Serious: No
  Sender: FDA-Public Use
  Company Number: US-009507513-1309USA009881

PATIENT
  Sex: Female

DRUGS (2)
  1. ZOCOR [Suspect]
     Dosage: 10 MG, UNK
     Route: 048
  2. ZOCOR [Suspect]
     Dosage: 20 MG, UNK
     Route: 048

REACTIONS (2)
  - Myalgia [Unknown]
  - Blood creatine phosphokinase increased [Unknown]
